FAERS Safety Report 18542328 (Version 1)
Quarter: 2020Q4

REPORT INFORMATION
  Report Type: Other
  Country: CA (occurrence: CA)
  Receive Date: 20201125
  Receipt Date: 20201125
  Transmission Date: 20210114
  Serious: Yes (Hospitalization, Other)
  Sender: FDA-Public Use
  Company Number: CA-APOTEX-2019AP017377

PATIENT
  Age: 66 Year
  Sex: Male

DRUGS (34)
  1. GEMCITABINE. [Suspect]
     Active Substance: GEMCITABINE
     Dosage: 1568 MILLIGRAM; CYCLICAL
     Route: 041
  2. ONDANSETRON [Concomitant]
     Active Substance: ONDANSETRON
     Indication: NAUSEA
     Dosage: UNK
     Route: 065
  3. PREDNISONE. [Concomitant]
     Active Substance: PREDNISONE
     Indication: INFLAMMATION
     Dosage: UNK
     Route: 048
  4. SOLU-CORTEF [Concomitant]
     Active Substance: HYDROCORTISONE SODIUM SUCCINATE
     Indication: PRODUCT USED FOR UNKNOWN INDICATION
     Dosage: UNK
     Route: 041
  5. TICILIMUMAB [Suspect]
     Active Substance: TREMELIMUMAB
     Indication: PANCREATIC CARCINOMA
     Dosage: 75 MG, UNK, 1 EVERY 4 WEEKS, INTRAVENOUS DRIP
     Route: 041
  6. MEDI4736 [Suspect]
     Active Substance: DURVALUMAB
     Indication: NON-SMALL CELL LUNG CANCER
  7. CELECOXIB. [Concomitant]
     Active Substance: CELECOXIB
     Indication: BACK PAIN
     Dosage: UNK
     Route: 065
  8. LEVAQUIN [Concomitant]
     Active Substance: LEVOFLOXACIN
     Indication: PRODUCT USED FOR UNKNOWN INDICATION
     Dosage: UNK
     Route: 048
  9. LOPERAMIDE [Concomitant]
     Active Substance: LOPERAMIDE
     Indication: PROPHYLAXIS AGAINST DIARRHOEA
     Dosage: UNK
     Route: 065
  10. HYDROCORTISONE. [Concomitant]
     Active Substance: HYDROCORTISONE
     Indication: HYPOTHYROIDISM
     Dosage: UNK
     Route: 065
  11. GEMCITABINE. [Suspect]
     Active Substance: GEMCITABINE
     Dosage: 1568 MILLIGRAM; 1 EVERY 4 WEEKS
     Route: 042
  12. DURVALUMAB. [Suspect]
     Active Substance: DURVALUMAB
     Indication: PANCREATIC CARCINOMA
     Dosage: 1500 MG, UNK, 1 EVERY 4 WEEKS, INTRAVENOUS DRIP
     Route: 041
  13. DURVALUMAB. [Suspect]
     Active Substance: DURVALUMAB
     Dosage: 1500 MILLIGRAM; CYCLICAL
     Route: 041
  14. PREGABALIN. [Concomitant]
     Active Substance: PREGABALIN
     Indication: BACK PAIN
     Dosage: UNK
     Route: 065
  15. HYDROMORPHONE [Concomitant]
     Active Substance: HYDROMORPHONE
     Indication: BACK PAIN
     Route: 065
  16. ASA [Concomitant]
     Active Substance: ASPIRIN
     Indication: ANTICOAGULANT THERAPY
  17. ACETYLSALICYLIC ACID [Concomitant]
     Active Substance: ASPIRIN
     Indication: ANTICOAGULANT THERAPY
     Dosage: UNK
     Route: 065
  18. POTASSIUM CHLORIDE. [Concomitant]
     Active Substance: POTASSIUM CHLORIDE
     Indication: BLOOD POTASSIUM DECREASED
  19. GEMCITABINE. [Suspect]
     Active Substance: GEMCITABINE
     Indication: PANCREATIC CARCINOMA
     Dosage: 2001.9 MG, UNK, 3 EVERY 28 DAYS, INTRAVENOUS DRIP
     Route: 041
  20. ABRAXANE [Suspect]
     Active Substance: PACLITAXEL
     Dosage: 196 MILLIGRAM; 1 EVERY 4 WEEKS
     Route: 042
  21. ABRAXANE [Suspect]
     Active Substance: PACLITAXEL
     Dosage: 196 MILLIGRAM; 1 EVERY 28 DAYS
     Route: 041
  22. ABRAXANE [Suspect]
     Active Substance: PACLITAXEL
     Dosage: 250.24 MILLIGRAM; CYCLICAL
     Route: 041
  23. ABRAXANE [Suspect]
     Active Substance: PACLITAXEL
     Dosage: 196 MILLIGRAM; CYCLICAL
     Route: 041
  24. TICILIMUMAB [Suspect]
     Active Substance: TREMELIMUMAB
     Dosage: 75 MILLIGRAM; CYCLICAL
     Route: 041
  25. MEDI4736 [Suspect]
     Active Substance: DURVALUMAB
     Indication: PANCREATIC CARCINOMA
     Dosage: 1500 MILLIGRAM; 1 EVERY 4 WEEKS
     Route: 042
  26. POTASSIUM CHLORIDE. [Concomitant]
     Active Substance: POTASSIUM CHLORIDE
     Indication: HYPOKALAEMIA
     Dosage: UNK
     Route: 065
  27. PROCHLORPERAZINE. [Concomitant]
     Active Substance: PROCHLORPERAZINE
     Indication: NAUSEA
     Dosage: UNK
     Route: 065
  28. ABRAXANE [Suspect]
     Active Substance: PACLITAXEL
     Indication: PANCREATIC CARCINOMA
     Dosage: 250.24 MG, 3 EVERY 28 DAYS
     Route: 041
  29. DURVALUMAB. [Suspect]
     Active Substance: DURVALUMAB
     Dosage: 1500 MG, UNK, 1 EVERY 4 WEEK, INTRAVENOUS DRIP
     Route: 041
  30. LOPERAMIDE [Concomitant]
     Active Substance: LOPERAMIDE
     Indication: DIARRHOEA
  31. GEMCITABINE. [Suspect]
     Active Substance: GEMCITABINE
     Dosage: 2001.9 MILLIGRAM; CYCLICAL
     Route: 041
  32. ABRAXANE [Suspect]
     Active Substance: PACLITAXEL
     Dosage: 196 MILLIGRAM; 1 EVERY 4 WEEKS
     Route: 042
  33. LEVOTHYROXINE. [Concomitant]
     Active Substance: LEVOTHYROXINE
     Indication: HYPOTHYROIDISM
     Dosage: UNK
     Route: 065
  34. PIPERACILLIN SODIUM [Concomitant]
     Active Substance: PIPERACILLIN SODIUM
     Indication: PRODUCT USED FOR UNKNOWN INDICATION
     Dosage: UNK, INTRAVENOUS DRIP
     Route: 065

REACTIONS (3)
  - Hypotension [Recovered/Resolved]
  - Sepsis [Recovered/Resolved]
  - Oedema peripheral [Recovered/Resolved]
